FAERS Safety Report 22895298 (Version 8)
Quarter: 2023Q4

REPORT INFORMATION
  Report Type: Spontaneous
  Country: US (occurrence: US)
  Receive Date: 20230901
  Receipt Date: 20231214
  Transmission Date: 20240110
  Serious: No
  Sender: FDA-Public Use
  Company Number: US-PFIZER INC-202300285949

PATIENT
  Age: 67 Year
  Sex: Male

DRUGS (2)
  1. GENOTROPIN [Suspect]
     Active Substance: SOMATROPIN
     Indication: Blood growth hormone abnormal
     Dosage: 0.6 MG
     Dates: start: 2017
  2. GENOTROPIN [Suspect]
     Active Substance: SOMATROPIN
     Dosage: 0.6 MG, 1X/DAY
     Dates: start: 20211014

REACTIONS (3)
  - Expired device used [Unknown]
  - Poor quality device used [Unknown]
  - Device breakage [Unknown]
